FAERS Safety Report 24992468 (Version 1)
Quarter: 2025Q1

REPORT INFORMATION
  Report Type: Report from Study
  Country: CO (occurrence: CO)
  Receive Date: 20250220
  Receipt Date: 20250220
  Transmission Date: 20250409
  Serious: Yes (Hospitalization)
  Sender: JOHNSON AND JOHNSON
  Company Number: CO-JNJFOC-20250239306

PATIENT
  Age: 56 Year
  Sex: Female
  Weight: 78 kg

DRUGS (3)
  1. INVEGA SUSTENNA [Suspect]
     Active Substance: PALIPERIDONE PALMITATE
     Indication: Schizophrenia
     Dosage: LAST APPLICATION DATE: 12-OCT-2024
     Route: 030
     Dates: start: 20240812
  2. INVEGA SUSTENNA [Suspect]
     Active Substance: PALIPERIDONE PALMITATE
  3. INVEGA SUSTENNA [Suspect]
     Active Substance: PALIPERIDONE PALMITATE

REACTIONS (4)
  - Malaise [Not Recovered/Not Resolved]
  - Insomnia [Not Recovered/Not Resolved]
  - Hospitalisation [Unknown]
  - Product dose omission issue [Unknown]

NARRATIVE: CASE EVENT DATE: 20250115
